FAERS Safety Report 17149949 (Version 1)
Quarter: 2019Q4

REPORT INFORMATION
  Report Type: Spontaneous
  Country: SE (occurrence: SE)
  Receive Date: 20191213
  Receipt Date: 20191213
  Transmission Date: 20200122
  Serious: Yes (Hospitalization)
  Sender: FDA-Public Use
  Company Number: SE-ACCORD-164773

PATIENT
  Sex: Female

DRUGS (4)
  1. SERTRALINE [Suspect]
     Active Substance: SERTRALINE HYDROCHLORIDE
     Route: 048
     Dates: start: 20180918, end: 20180918
  2. HYDROXYZINE [Suspect]
     Active Substance: HYDROXYZINE HYDROCHLORIDE
     Route: 048
     Dates: start: 20180918, end: 20180918
  3. TRAMADOL. [Suspect]
     Active Substance: TRAMADOL
     Dosage: 1 TRAMADOL
     Route: 048
     Dates: start: 20180918, end: 20180918
  4. PROPAVAN [Suspect]
     Active Substance: PROPIOMAZINE
     Dosage: 50 ST
     Route: 048
     Dates: start: 20180918, end: 20180918

REACTIONS (3)
  - Intentional overdose [Unknown]
  - Intentional self-injury [Unknown]
  - Restlessness [Unknown]

NARRATIVE: CASE EVENT DATE: 20180918
